FAERS Safety Report 6655888-0 (Version None)
Quarter: 2010Q1

REPORT INFORMATION
  Report Type: 
  Country: None (occurrence: None)
  Receive Date: 20100329
  Receipt Date: 20100315
  Transmission Date: 20100710
  Serious: Yes (Other)
  Sender: FDA-Public Use
  Company Number: PHHY2010JP16240

PATIENT
  Age: 70 Year
  Sex: Male
  Weight: 53 kg

DRUGS (8)
  1. ZOMETA [Suspect]
     Indication: METASTASES TO BONE
     Dosage: 4MG (PER ADMINISTRATION)
     Route: 042
     Dates: start: 20090722
  2. ZOMETA [Suspect]
     Dosage: 4MG (PER ADMINISTRATION)
     Dates: start: 20090819
  3. ZOMETA [Suspect]
     Dosage: 4MG (PER ADMINISTRATION)
     Dates: start: 20090916
  4. ZOMETA [Suspect]
     Dosage: 4MG (PER ADMINISTRATION)
     Dates: start: 20091014
  5. ZOMETA [Suspect]
     Dosage: 4MG (PER ADMINISTRATION)
     Dates: start: 20091125
  6. ZOMETA [Suspect]
     Dosage: UNK
     Dates: start: 20100217
  7. DOCETAXEL [Concomitant]
     Route: 042
  8. DECADRON [Concomitant]
     Route: 042

REACTIONS (5)
  - BONE DISORDER [None]
  - DENTAL FISTULA [None]
  - OSTEONECROSIS [None]
  - PURULENT DISCHARGE [None]
  - TOOTH DISORDER [None]
